FAERS Safety Report 5732219-1 (Version None)
Quarter: 2008Q2

REPORT INFORMATION
  Report Type: 
  Country: None (occurrence: None)
  Receive Date: 20080508
  Receipt Date: 20080425
  Transmission Date: 20081010
  Serious: Yes (Other)
  Sender: FDA-Public Use
  Company Number: JP-PFIZER INC-2008036055

PATIENT
  Sex: Male

DRUGS (2)
  1. XALATAN [Suspect]
     Dosage: DAILY DOSE:1DROP
     Route: 031
     Dates: start: 20080319, end: 20080421
  2. UNOPROSTONE ISOPROPYL [Concomitant]
     Route: 031

REACTIONS (3)
  - CORNEAL DISORDER [None]
  - DRY EYE [None]
  - FEELING ABNORMAL [None]
